FAERS Safety Report 26078742 (Version 1)
Quarter: 2025Q4

REPORT INFORMATION
  Report Type: Spontaneous
  Country: US (occurrence: US)
  Receive Date: 20251123
  Receipt Date: 20251123
  Transmission Date: 20260118
  Serious: No
  Sender: GALPHARM INTERNATIONAL
  Company Number: US-PERRIGO-25US000690

PATIENT
  Sex: Female

DRUGS (1)
  1. OPILL [Suspect]
     Active Substance: NORGESTREL
     Indication: Product used for unknown indication
     Dosage: 0.075 MG, SINGLE
     Route: 048
     Dates: start: 20250110, end: 20250110

REACTIONS (3)
  - Pruritus [Unknown]
  - Hypersensitivity [Unknown]
  - Rash [Unknown]

NARRATIVE: CASE EVENT DATE: 20250110
